FAERS Safety Report 24689485 (Version 1)
Quarter: 2024Q4

REPORT INFORMATION
  Report Type: Spontaneous
  Country: US (occurrence: US)
  Receive Date: 20241203
  Receipt Date: 20241203
  Transmission Date: 20250114
  Serious: Yes (Hospitalization)
  Sender: BRISTOL-MYERS SQUIBB COMPANY
  Company Number: US-BRISTOL-MYERS SQUIBB COMPANY-2024-187010

PATIENT
  Age: 77 Year
  Sex: Female
  Weight: 102.06 kg

DRUGS (1)
  1. POMALYST [Suspect]
     Active Substance: POMALIDOMIDE
     Indication: Endometrial cancer
     Dosage: 3 WKS ON,1 WK OFF
     Route: 048

REACTIONS (1)
  - Hospitalisation [Unknown]
